FAERS Safety Report 5067218-9 (Version None)
Quarter: 2006Q3

REPORT INFORMATION
  Report Type: 
  Country: None (occurrence: None)
  Receive Date: 20060726
  Receipt Date: 20060713
  Transmission Date: 20061208
  Serious: Yes (Death, Life-Threatening)
  Sender: FDA-Public Use
  Company Number: 2006EU001985

PATIENT
  Age: 64 Year
  Sex: Male
  Weight: 88 kg

DRUGS (6)
  1. FK506 (TACROLIMUS) CAPSULES [Suspect]
     Indication: GRAFT VERSUS HOST DISEASE
     Dosage: SEE IMAGE
     Dates: start: 20060514, end: 20060614
  2. FK506 (TACROLIMUS) CAPSULES [Suspect]
     Indication: GRAFT VERSUS HOST DISEASE
     Dosage: SEE IMAGE
     Dates: start: 20060622, end: 20060625
  3. EVEROLIMUS (EVEROLIMUS) [Suspect]
     Indication: GRAFT VERSUS HOST DISEASE
     Dosage: SEE IMAGE
     Route: 048
     Dates: start: 20060515, end: 20060612
  4. EVEROLIMUS (EVEROLIMUS) [Suspect]
     Indication: GRAFT VERSUS HOST DISEASE
     Dosage: SEE IMAGE
     Route: 048
     Dates: start: 20060620, end: 20060624
  5. PREDNISOLONE [Concomitant]
  6. CYCLOSPORINE [Concomitant]

REACTIONS (5)
  - CYSTITIS HAEMORRHAGIC [None]
  - DRUG TOXICITY [None]
  - HEPATORENAL SYNDROME [None]
  - PYREXIA [None]
  - VENOOCCLUSIVE LIVER DISEASE [None]
